FAERS Safety Report 11613831 (Version 2)
Quarter: 2015Q4

REPORT INFORMATION
  Report Type: Spontaneous
  Country: BR (occurrence: BR)
  Receive Date: 20151008
  Receipt Date: 20151016
  Transmission Date: 20160304
  Serious: Yes (Hospitalization)
  Sender: FDA-Public Use
  Company Number: BR-ABBVIE-14P-020-1276802-00

PATIENT
  Age: 39 Year
  Sex: Male
  Weight: 101 kg

DRUGS (15)
  1. DEPAKENE [Suspect]
     Active Substance: VALPROIC ACID
     Indication: OBSESSIVE-COMPULSIVE DISORDER
     Route: 065
     Dates: start: 201401, end: 201402
  2. DEPAKENE [Suspect]
     Active Substance: VALPROIC ACID
     Dosage: 1000 MILLIGRAM DAILY, MORNING/ NIGHT
     Route: 065
     Dates: start: 20140218
  3. CLONAZEPAN [Concomitant]
     Active Substance: CLONAZEPAM
     Indication: PRODUCT USED FOR UNKNOWN INDICATION
     Dosage: DAILY DOSE: 1 TABLET IN THE MORNING
  4. HALDOL [Concomitant]
     Active Substance: HALOPERIDOL
     Indication: PRODUCT USED FOR UNKNOWN INDICATION
     Dosage: DAILY DOSE: 15 MG: MORNING, AFTERNOON AND NIGHT
     Route: 048
  5. CLOMIPRAMINE [Concomitant]
     Active Substance: CLOMIPRAMINE
     Indication: PRODUCT USED FOR UNKNOWN INDICATION
     Dosage: DAILY DOSE: 100MG: MORNING AND NIGHT;
     Route: 048
  6. DEPAKENE [Suspect]
     Active Substance: VALPROIC ACID
     Route: 065
     Dates: start: 201402, end: 201402
  7. SERTRALINE [Suspect]
     Active Substance: SERTRALINE HYDROCHLORIDE
     Route: 048
     Dates: start: 2014
  8. DEPAKENE [Suspect]
     Active Substance: VALPROIC ACID
     Route: 065
     Dates: start: 201402, end: 201402
  9. ARIPIPRAZOL [Concomitant]
     Active Substance: ARIPIPRAZOLE
     Indication: THINKING ABNORMAL
     Route: 048
  10. SERTRALINE [Suspect]
     Active Substance: SERTRALINE HYDROCHLORIDE
     Indication: OBSESSIVE-COMPULSIVE DISORDER
     Route: 065
     Dates: start: 2014
  11. DEPAKENE [Suspect]
     Active Substance: VALPROIC ACID
     Route: 048
     Dates: start: 20140812
  12. RIVOTRIL [Concomitant]
     Active Substance: CLONAZEPAM
     Indication: PRODUCT USED FOR UNKNOWN INDICATION
     Dosage: 4 MILLIGRAM, 2 TABLETS AT NIGHT
  13. RISPERIDONE. [Concomitant]
     Active Substance: RISPERIDONE
     Indication: PRODUCT USED FOR UNKNOWN INDICATION
     Dosage: 30 MILLIGRAM, 3 TABLETS AT NIGHT
  14. CLONAZEPAN [Concomitant]
     Active Substance: CLONAZEPAM
     Dosage: DAILY DOSE: 6MG: MORNING, AFTERNOON AND NIGHT;
     Route: 048
  15. AMPLICTIL [Concomitant]
     Active Substance: CHLORPROMAZINE HYDROCHLORIDE
     Indication: PRODUCT USED FOR UNKNOWN INDICATION
     Dosage: DAILY DOSE: 300MG: MORNING, AFTERNOON AND NIGHT;
     Route: 048

REACTIONS (10)
  - Myopia [Unknown]
  - Drug ineffective [Recovered/Resolved]
  - Weight increased [Recovering/Resolving]
  - Astigmatism [Unknown]
  - Abdominal distension [Recovering/Resolving]
  - Off label use [Unknown]
  - Swelling face [Recovering/Resolving]
  - Cardiovascular disorder [Unknown]
  - Fatigue [Recovering/Resolving]
  - Depressed mood [Unknown]

NARRATIVE: CASE EVENT DATE: 2014
